FAERS Safety Report 6736426-0 (Version None)
Quarter: 2010Q2

REPORT INFORMATION
  Report Type: 
  Country: None (occurrence: None)
  Receive Date: 20100521
  Receipt Date: 20100513
  Transmission Date: 20101027
  Serious: Yes (Hospitalization, Disabling)
  Sender: FDA-Public Use
  Company Number: US-MERCK-0904USA01191

PATIENT
  Age: 55 Year
  Sex: Female
  Weight: 78 kg

DRUGS (3)
  1. FOSAMAX [Suspect]
     Indication: OSTEOPENIA
     Route: 048
     Dates: start: 19981101, end: 20000201
  2. FOSAMAX [Suspect]
     Route: 048
     Dates: start: 20010401, end: 20080301
  3. PREMPRO [Concomitant]
     Indication: HORMONE THERAPY
     Route: 065

REACTIONS (34)
  - ACTINIC KERATOSIS [None]
  - ACUTE SINUSITIS [None]
  - ADVERSE DRUG REACTION [None]
  - ANXIETY [None]
  - APHTHOUS STOMATITIS [None]
  - ARTHRALGIA [None]
  - BACK PAIN [None]
  - BONE PAIN [None]
  - CONTUSION [None]
  - DEPRESSION [None]
  - DERMATITIS CONTACT [None]
  - FEMUR FRACTURE [None]
  - FIBROCYSTIC BREAST DISEASE [None]
  - HAEMATOCHEZIA [None]
  - HYPERLIPIDAEMIA [None]
  - HYPOTHYROIDISM [None]
  - IMPAIRED HEALING [None]
  - LICHEN PLANUS [None]
  - LOW TURNOVER OSTEOPATHY [None]
  - MELANOCYTIC NAEVUS [None]
  - NERVOUSNESS [None]
  - NOCTURIA [None]
  - ORAL LICHEN PLANUS [None]
  - OSTEOPOROSIS [None]
  - PAIN IN EXTREMITY [None]
  - POLLAKIURIA [None]
  - POSTMENOPAUSAL HAEMORRHAGE [None]
  - PSYCHOMOTOR HYPERACTIVITY [None]
  - RHINITIS ALLERGIC [None]
  - SPINAL OSTEOARTHRITIS [None]
  - STRESS FRACTURE [None]
  - STRESS URINARY INCONTINENCE [None]
  - UPPER RESPIRATORY TRACT INFECTION [None]
  - WEIGHT INCREASED [None]
